FAERS Safety Report 22874717 (Version 2)
Quarter: 2023Q4

REPORT INFORMATION
  Report Type: Spontaneous
  Country: US (occurrence: US)
  Receive Date: 20230828
  Receipt Date: 20231017
  Transmission Date: 20240110
  Serious: No
  Sender: FDA-Public Use
  Company Number: US-SA-SAC20230828000552

PATIENT
  Age: 62 Year
  Sex: Female
  Weight: 67.1 kg

DRUGS (7)
  1. DUPIXENT [Suspect]
     Active Substance: DUPILUMAB
     Indication: Nasal polyps
     Dosage: 300 MG, QOW
     Route: 058
  2. ROSUVASTATIN CALCIUM [Concomitant]
     Active Substance: ROSUVASTATIN CALCIUM
  3. OZEMPIC [Concomitant]
     Active Substance: SEMAGLUTIDE
     Indication: Weight decreased
     Dosage: WEEKLY
  4. XOPENEX HFA [Concomitant]
     Active Substance: LEVALBUTEROL TARTRATE
  5. VITAMIN D3 [Concomitant]
     Active Substance: CHOLECALCIFEROL
  6. ASPIRIN [Concomitant]
     Active Substance: ASPIRIN
  7. PAXLOVID [Concomitant]
     Active Substance: NIRMATRELVIR\RITONAVIR

REACTIONS (1)
  - COVID-19 [Unknown]

NARRATIVE: CASE EVENT DATE: 20230824
